FAERS Safety Report 8933399 (Version 2)
Quarter: 2013Q1

REPORT INFORMATION
  Report Type: Report from Study
  Country: CZ (occurrence: CZ)
  Receive Date: 20121128
  Receipt Date: 20130308
  Transmission Date: 20140127
  Serious: Yes (Death)
  Sender: FDA-Public Use
  Company Number: CZ-PFIZER INC-2012297102

PATIENT
  Age: 78 Year
  Sex: Female
  Weight: 54 kg

DRUGS (7)
  1. TOFACITINIB CITRATE [Suspect]
     Indication: RHEUMATOID ARTHRITIS
     Dosage: 10 MG, 2X/DAY
     Route: 048
     Dates: start: 20081208
  2. PREDNISON [Concomitant]
     Indication: RHEUMATOID ARTHRITIS
     Dosage: 5 MG, 1X/DAY
     Route: 048
     Dates: start: 20070527
  3. DICLOFENAC [Concomitant]
     Indication: RHEUMATOID ARTHRITIS
     Dosage: 150 MG, 1X/DAY
     Route: 048
     Dates: start: 200709
  4. THYROXINE [Concomitant]
     Indication: THYROID HORMONE REPLACEMENT THERAPY
     Dosage: 75 UG, 1X/DAY
     Dates: start: 1997
  5. CALCIUM [Concomitant]
     Indication: OSTEOPOROSIS
     Dosage: 500 MG, 1X/DAY
     Route: 048
     Dates: start: 20080307
  6. COLECALCIFEROL [Concomitant]
     Indication: OSTEOPOROSIS
     Dosage: 16650 IU, 1X/DAY
     Route: 048
     Dates: start: 20080307
  7. RISEDRONATE [Concomitant]
     Indication: OSTEOPOROSIS
     Dosage: 35 MG, 1X/DAY
     Route: 048
     Dates: start: 20090831

REACTIONS (1)
  - Cardiopulmonary failure [Fatal]
